FAERS Safety Report 20216278 (Version 1)
Quarter: 2021Q4

REPORT INFORMATION
  Report Type: Spontaneous
  Country: CN (occurrence: None)
  Receive Date: 20211222
  Receipt Date: 20211222
  Transmission Date: 20220303
  Serious: Yes (Other)
  Sender: FDA-Public Use
  Company Number: CN-ROCHE-2978899

PATIENT
  Age: 44 Year
  Sex: Male

DRUGS (12)
  1. GAZYVA [Suspect]
     Active Substance: OBINUTUZUMAB
     Indication: Follicular lymphoma
     Dosage: ON DAY 1, DAY 8, DAY 5
     Route: 042
     Dates: start: 20210920
  2. GAZYVA [Suspect]
     Active Substance: OBINUTUZUMAB
     Dosage: ON 18 OCT 2021, 15 NOV 2021. ON DAY 1
     Route: 042
     Dates: start: 20211018
  3. RITUXIMAB [Concomitant]
     Active Substance: RITUXIMAB
     Indication: Follicular lymphoma
     Dosage: ON DAY 0. THE MANUFACTURER WAS NOT ROCHE
     Route: 065
     Dates: start: 20210816
  4. CYCLOPHOSPHAMIDE [Concomitant]
     Active Substance: CYCLOPHOSPHAMIDE
     Indication: Follicular lymphoma
  5. DOXORUBICIN [Concomitant]
     Active Substance: DOXORUBICIN
     Indication: Follicular lymphoma
     Dosage: RCHOP REGIMEN
  6. VINCRISTINE [Concomitant]
     Active Substance: VINCRISTINE
     Indication: Follicular lymphoma
     Dosage: RCHOP REGIMEN
  7. PREDNISONE [Concomitant]
     Active Substance: PREDNISONE
     Indication: Follicular lymphoma
     Dosage: RCHOP REGIMEN
  8. GEMCITABINE [Concomitant]
     Active Substance: GEMCITABINE
     Indication: Follicular lymphoma
     Dosage: ON DAY 1 AND DAY 8
     Dates: start: 20210816
  9. CISPLATIN [Concomitant]
     Active Substance: CISPLATIN
     Indication: Follicular lymphoma
     Dosage: ON DAY 1
     Dates: start: 20210816
  10. DEXAMETHASONE [Concomitant]
     Active Substance: DEXAMETHASONE
     Indication: Follicular lymphoma
     Dosage: FROM DAY 1 TO DAY 4
     Dates: start: 20210816
  11. BENDAMUSTINE [Concomitant]
     Active Substance: BENDAMUSTINE
     Indication: Follicular lymphoma
     Dosage: AT 150 MG ON DAY 2, 175 MG ON DAY 3
     Dates: start: 20210920
  12. BENDAMUSTINE [Concomitant]
     Active Substance: BENDAMUSTINE
     Dosage: ON 18 OCT 2021, 15 NOV 2021. AT 150MG ON DAY 2, 175MG ON DAY 3
     Dates: start: 20211018

REACTIONS (1)
  - Myelosuppression [Unknown]
